FAERS Safety Report 10084073 (Version 1)
Quarter: 2014Q2

REPORT INFORMATION
  Report Type: Spontaneous
  Country: BR (occurrence: BR)
  Receive Date: 20140417
  Receipt Date: 20140417
  Transmission Date: 20141212
  Serious: Yes (Other)
  Sender: FDA-Public Use
  Company Number: BR-ASTRAZENECA-2014SE25290

PATIENT
  Age: 51 Year
  Sex: Female
  Weight: 55 kg

DRUGS (3)
  1. BRILINTA [Suspect]
     Indication: THROMBOSIS PROPHYLAXIS
     Route: 048
     Dates: start: 20140107, end: 201403
  2. AAS [Concomitant]
     Route: 048
  3. CAPTOPRIL [Concomitant]
     Route: 048

REACTIONS (2)
  - Breast mass [Not Recovered/Not Resolved]
  - Drug dose omission [Unknown]
